FAERS Safety Report 6545604-5 (Version None)
Quarter: 2010Q1

REPORT INFORMATION
  Report Type: 
  Country: None (occurrence: None)
  Receive Date: 20100121
  Receipt Date: 20100112
  Transmission Date: 20100710
  Serious: Yes (Disabling, Congenital Anomaly)
  Sender: FDA-Public Use
  Company Number: JP-EISAI INC.-E2090-00948-SPO-JP

PATIENT
  Sex: Male

DRUGS (4)
  1. EXCEGRAN [Suspect]
     Dosage: 2 OF 100MG TABLETS
     Route: 064
     Dates: start: 20050204, end: 20080103
  2. EXCEGRAN [Suspect]
     Route: 064
     Dates: start: 20080104
  3. DEPAKENE [Suspect]
     Dosage: 4 OF 200MG TABLETS
     Route: 064
     Dates: start: 20001221, end: 20070913
  4. DEPAKENE [Suspect]
     Dosage: 2 OF 200MG TABLETS
     Route: 064
     Dates: start: 20070914

REACTIONS (2)
  - CONGENITAL HAND MALFORMATION [None]
  - DRUG EXPOSURE DURING PREGNANCY [None]
